FAERS Safety Report 9931443 (Version 3)
Quarter: 2014Q1

REPORT INFORMATION
  Report Type: Spontaneous
  Country: JP (occurrence: JP)
  Receive Date: 20140228
  Receipt Date: 20140325
  Transmission Date: 20141002
  Serious: Yes (Hospitalization)
  Sender: FDA-Public Use
  Company Number: JP-ROCHE-1354588

PATIENT
  Age: 90 Year
  Sex: Female

DRUGS (5)
  1. PERJETA [Suspect]
     Indication: BREAST CANCER RECURRENT
     Dosage: FORM STRENGTH: 420MG/14ML
     Route: 041
     Dates: start: 20140127, end: 20140127
  2. HERCEPTIN [Suspect]
     Indication: BREAST CANCER
     Route: 041
     Dates: start: 201007, end: 201007
  3. HERCEPTIN [Suspect]
     Route: 041
     Dates: start: 201007, end: 20140127
  4. ZOMETA [Suspect]
     Indication: PRODUCT USED FOR UNKNOWN INDICATION
     Route: 041
  5. HALAVEN [Concomitant]
     Indication: BREAST CANCER RECURRENT
     Route: 041

REACTIONS (1)
  - Renal impairment [Unknown]
